FAERS Safety Report 5225868-0 (Version None)
Quarter: 2007Q1

REPORT INFORMATION
  Report Type: 
  Country: None (occurrence: None)
  Receive Date: 20070201
  Receipt Date: 20070125
  Transmission Date: 20070707
  Serious: Yes (Other)
  Sender: FDA-Public Use
  Company Number: NLWYE386529JAN07

PATIENT
  Age: 45 Year
  Sex: Male

DRUGS (1)
  1. EFFEXOR XR [Suspect]

REACTIONS (2)
  - ASTHENIA [None]
  - PARALYSIS [None]
